FAERS Safety Report 6603950-0 (Version None)
Quarter: 2010Q1

REPORT INFORMATION
  Report Type: 
  Country: None (occurrence: None)
  Receive Date: 20100226
  Receipt Date: 20090325
  Transmission Date: 20100710
  Serious: No
  Sender: FDA-Public Use
  Company Number: A0775360A

PATIENT
  Age: 28 Year
  Sex: Male

DRUGS (4)
  1. LAMICTAL CD [Suspect]
     Indication: BIPOLAR DISORDER
     Dosage: 50MG PER DAY
     Route: 048
     Dates: start: 20090101, end: 20090101
  2. PRISTIQ [Concomitant]
  3. ZOLPIDEM [Concomitant]
  4. WELLBUTRIN SR [Concomitant]
     Route: 048

REACTIONS (2)
  - RASH [None]
  - RASH GENERALISED [None]
